FAERS Safety Report 5285326-4 (Version None)
Quarter: 2007Q1

REPORT INFORMATION
  Report Type: 
  Country: None (occurrence: None)
  Receive Date: 20070328
  Receipt Date: 20070316
  Transmission Date: 20070707
  Serious: Yes (Other)
  Sender: FDA-Public Use
  Company Number: 2006JP005130

PATIENT
  Age: 10 Year
  Sex: Male
  Weight: 27.8 kg

DRUGS (8)
  1. PROGRAF [Suspect]
     Indication: BONE MARROW TRANSPLANT
     Dosage: 0.03 MG/KG D
     Dates: start: 20051201
  2. PROGRAF [Suspect]
     Indication: BONE MARROW TRANSPLANT
     Dosage: ORAL
     Route: 048
     Dates: end: 20061219
  3. CYCLOPHOSPHAMIDE [Suspect]
     Indication: BONE MARROW TRANSPLANT
     Dosage: 10 MG/KG, UID/QD, IV NOS
     Route: 042
     Dates: start: 20051127, end: 20051130
  4. PREDNISOLONE [Suspect]
     Indication: BONE MARROW TRANSPLANT
     Dosage: 2 MG/KG, D, IV NOS
     Route: 042
     Dates: start: 20051128
  5. PREDNISOLONE [Suspect]
     Indication: BONE MARROW TRANSPLANT
     Dosage: ORAL
     Route: 048
  6. FLUDARABINE PHOSPHATE [Concomitant]
  7. ANTITHYMOCYTE IMMUNOGLOBULIN (ANTITHYMOCYTE IMMUNOGLOBULIN) INJECTION [Concomitant]
  8. METHOTREXATE (METHOTREXATE SODIUM) INJECTION [Concomitant]

REACTIONS (5)
  - CYSTITIS HAEMORRHAGIC [None]
  - CYTOMEGALOVIRUS INFECTION [None]
  - HYPERTENSION [None]
  - REVERSIBLE POSTERIOR LEUKOENCEPHALOPATHY SYNDROME [None]
  - THERAPEUTIC AGENT TOXICITY [None]
